FAERS Safety Report 6227311-1 (Version None)
Quarter: 2009Q2

REPORT INFORMATION
  Report Type: 
  Country: None (occurrence: None)
  Receive Date: 20090612
  Receipt Date: 20090608
  Transmission Date: 20091009
  Serious: Yes (Hospitalization)
  Sender: FDA-Public Use
  Company Number: US-ABBOTT-09P-163-0578721-00

PATIENT
  Sex: Female

DRUGS (2)
  1. HUMIRA [Suspect]
     Indication: CROHN'S DISEASE
     Route: 058
     Dates: start: 20080131
  2. HUMIRA [Suspect]
     Dates: start: 20090609

REACTIONS (4)
  - DRUG DOSE OMISSION [None]
  - INFUSION SITE ERYTHEMA [None]
  - INFUSION SITE IRRITATION [None]
  - OBSTRUCTION [None]
